FAERS Safety Report 4383701-3 (Version None)
Quarter: 2004Q2

REPORT INFORMATION
  Report Type: 
  Country: None (occurrence: None)
  Receive Date: 20040618
  Receipt Date: 20040612
  Transmission Date: 20050107
  Serious: Yes (Hospitalization)
  Sender: FDA-Public Use
  Company Number: 139150USA

PATIENT
  Age: 77 Year
  Sex: Female

DRUGS (1)
  1. PURINETHOL [Suspect]

REACTIONS (2)
  - PULMONARY OEDEMA [None]
  - UNEVALUABLE EVENT [None]
